FAERS Safety Report 15324476 (Version 2)
Quarter: 2018Q4

REPORT INFORMATION
  Report Type: Spontaneous
  Country: US (occurrence: US)
  Receive Date: 20180828
  Receipt Date: 20180929
  Transmission Date: 20190204
  Serious: No
  Sender: FDA-Public Use
  Company Number: US-009507513-1805USA014747

PATIENT
  Sex: Female
  Weight: 92.97 kg

DRUGS (2)
  1. BETAMETHASONE DIPROPIONATE (+) SALICYLIC ACID [Suspect]
     Active Substance: BETAMETHASONE DIPROPIONATE\SALICYLIC ACID
     Indication: PRODUCT USE IN UNAPPROVED INDICATION
     Dosage: UNK
     Route: 061
  2. DIURETIC (UNSPECIFIED) [Concomitant]
     Active Substance: UNSPECIFIED INGREDIENT

REACTIONS (3)
  - Paraesthesia [Unknown]
  - Pain [Not Recovered/Not Resolved]
  - Contraindicated product administered [Unknown]
